FAERS Safety Report 10931477 (Version 1)
Quarter: 2015Q1

REPORT INFORMATION
  Report Type: Spontaneous
  Country: US (occurrence: US)
  Receive Date: 20150319
  Receipt Date: 20150319
  Transmission Date: 20150721
  Serious: No
  Sender: FDA-Public Use
  Company Number: US-SHIONOGI, INC-2014001248

PATIENT
  Sex: Female

DRUGS (2)
  1. OSPHENA [Suspect]
     Active Substance: OSPEMIFENE
     Indication: OFF LABEL USE
  2. OSPHENA [Suspect]
     Active Substance: OSPEMIFENE
     Indication: ATROPHY
     Dosage: 60 MG, UNK
     Route: 065
     Dates: end: 20141126

REACTIONS (2)
  - Off label use [Unknown]
  - Blood prolactin increased [Unknown]
